FAERS Safety Report 6930728-0 (Version None)
Quarter: 2010Q3

REPORT INFORMATION
  Report Type: 
  Country: None (occurrence: None)
  Receive Date: 20100810
  Receipt Date: 20091212
  Transmission Date: 20110219
  Serious: Yes (Other)
  Sender: FDA-Public Use
  Company Number: 2009285772

PATIENT
  Sex: Female

DRUGS (3)
  1. FLAGYL [Suspect]
     Indication: CLOSTRIDIAL INFECTION
  2. VANCOMYCIN [Concomitant]
  3. RIFAXIMIN (RIFAXIMIN) [Concomitant]

REACTIONS (1)
  - NEUROPATHY PERIPHERAL [None]
